FAERS Safety Report 8145676-0 (Version None)
Quarter: 2012Q1

REPORT INFORMATION
  Report Type: 
  Country: None (occurrence: None)
  Receive Date: 20120217
  Receipt Date: 20110214
  Transmission Date: 20120608
  Serious: No
  Sender: FDA-Public Use
  Company Number: US-ALLERGAN-1102155US

PATIENT
  Sex: Female

DRUGS (1)
  1. TAZORAC [Suspect]
     Indication: SKIN WRINKLING
     Dosage: UNK

REACTIONS (2)
  - SKIN IRRITATION [None]
  - SKIN EXFOLIATION [None]
